FAERS Safety Report 8092302-5 (Version None)
Quarter: 2012Q1

REPORT INFORMATION
  Report Type: 
  Country: None (occurrence: None)
  Receive Date: 20120129
  Receipt Date: 20111120
  Transmission Date: 20120608
  Serious: Yes (Other)
  Sender: FDA-Public Use
  Company Number: US-ABBOTT-11P-163-0877082-00

PATIENT
  Age: 36 Year
  Sex: Female

DRUGS (2)
  1. PENTASA [Concomitant]
     Indication: PRODUCT USED FOR UNKNOWN INDICATION
  2. HUMIRA [Suspect]
     Indication: CROHN'S DISEASE
     Dates: start: 20110823

REACTIONS (3)
  - NASAL CONGESTION [None]
  - RHINORRHOEA [None]
  - NEPHROLITHIASIS [None]
